FAERS Safety Report 24530001 (Version 1)
Quarter: 2024Q4

REPORT INFORMATION
  Report Type: Spontaneous
  Country: US (occurrence: US)
  Receive Date: 20241021
  Receipt Date: 20241021
  Transmission Date: 20250114
  Serious: Yes (Death, Life-Threatening, Hospitalization)
  Sender: NORDIC PHARMA
  Company Number: US-MLMSERVICE-20240924-PI204818-00218-1

PATIENT
  Age: 76 Year
  Sex: Female

DRUGS (5)
  1. METHOTREXATE [Suspect]
     Active Substance: METHOTREXATE
     Indication: Rheumatoid arthritis-associated interstitial lung disease
  2. APIXABAN [Concomitant]
     Active Substance: APIXABAN
     Indication: Pulmonary embolism
  3. HYDROXYCHLOROQUINE [Concomitant]
     Active Substance: HYDROXYCHLOROQUINE
     Indication: Rheumatoid arthritis-associated interstitial lung disease
  4. PREDNISONE [Concomitant]
     Active Substance: PREDNISONE
     Indication: Rheumatoid arthritis-associated interstitial lung disease
  5. OXYGEN [Concomitant]
     Active Substance: OXYGEN
     Indication: Oxygen therapy

REACTIONS (5)
  - Acute respiratory distress syndrome [Unknown]
  - Multiple organ dysfunction syndrome [Fatal]
  - Pulmonary tuberculosis [Unknown]
  - Respiratory failure [Unknown]
  - Product use in unapproved indication [Unknown]
